FAERS Safety Report 16239605 (Version 1)
Quarter: 2019Q2

REPORT INFORMATION
  Report Type: Spontaneous
  Country: US (occurrence: US)
  Receive Date: 20190322
  Receipt Date: 20190322
  Transmission Date: 20190711
  Serious: Yes (Disabling)
  Sender: FDA-Public Use
  Company Number: None

PATIENT
  Age: 76 Year
  Sex: Male
  Weight: 83.01 kg

DRUGS (11)
  1. ADVAIR DISKUS [Concomitant]
     Active Substance: FLUTICASONE PROPIONATE\SALMETEROL XINAFOATE
  2. CENTRUM SILVER VITAMINS [Concomitant]
  3. HUMIRA [Suspect]
     Active Substance: ADALIMUMAB
     Indication: CROHN^S DISEASE
     Dosage: ?          QUANTITY:40 MG MILLIGRAM(S);OTHER FREQUENCY:EVERY 2 WKS;?
     Route: 058
     Dates: start: 20161119, end: 20190108
  4. HUMIRA [Concomitant]
     Active Substance: ADALIMUMAB
  5. DIOVAN [Concomitant]
     Active Substance: VALSARTAN
  6. SYNTHROID [Concomitant]
     Active Substance: LEVOTHYROXINE SODIUM
  7. QUESTRAN POWDER PACKETS [Concomitant]
  8. PREDNISONE. [Concomitant]
     Active Substance: PREDNISONE
  9. TYLENOL [Concomitant]
     Active Substance: ACETAMINOPHEN
  10. PRILOSEC (OMEPRAZOLE) [Concomitant]
     Active Substance: OMEPRAZOLE MAGNESIUM
  11. PREVNAR [Concomitant]
     Active Substance: PNEUMOCOCCAL 7-VALENT CONJUGATE VACCINE (DIPHTHERIA CRM197 PROTEIN)

REACTIONS (19)
  - Fatigue [None]
  - Lethargy [None]
  - Bronchiectasis [None]
  - Cough [None]
  - Hypersomnia [None]
  - Frustration tolerance decreased [None]
  - Dyspnoea [None]
  - Diarrhoea [None]
  - Productive cough [None]
  - Arthritis [None]
  - Eosinophilia [None]
  - Laboratory test interference [None]
  - Bronchitis [None]
  - Wheezing [None]
  - Malaise [None]
  - Anaemia [None]
  - Exercise tolerance decreased [None]
  - Viraemia [None]
  - Asthenia [None]

NARRATIVE: CASE EVENT DATE: 201712
